FAERS Safety Report 6083718-7 (Version None)
Quarter: 2009Q1

REPORT INFORMATION
  Report Type: 
  Country: None (occurrence: None)
  Receive Date: 20090219
  Receipt Date: 20090206
  Transmission Date: 20090719
  Serious: Yes (Hospitalization)
  Sender: FDA-Public Use
  Company Number: CH-PFIZER INC-2009168914

PATIENT

DRUGS (1)
  1. CABASER [Suspect]
     Route: 048
     Dates: start: 20010301, end: 20060601

REACTIONS (1)
  - PLEURAL MESOTHELIOMA [None]
